FAERS Safety Report 19534380 (Version 1)
Quarter: 2021Q3

REPORT INFORMATION
  Report Type: Spontaneous
  Country: US (occurrence: US)
  Receive Date: 20210713
  Receipt Date: 20210713
  Transmission Date: 20211014
  Serious: Yes (Hospitalization, Other)
  Sender: FDA-Public Use
  Company Number: US-ALVOGEN-2021-ALVOGEN-117186

PATIENT
  Age: 53 Year
  Sex: Male

DRUGS (1)
  1. LISINOPRIL. [Suspect]
     Active Substance: LISINOPRIL
     Indication: ESSENTIAL HYPERTENSION
     Route: 048

REACTIONS (2)
  - Drug hypersensitivity [Recovered/Resolved]
  - Pancreatitis necrotising [Recovered/Resolved]
